FAERS Safety Report 7300456-0 (Version None)
Quarter: 2011Q1

REPORT INFORMATION
  Report Type: 
  Country: None (occurrence: None)
  Receive Date: 20110217
  Receipt Date: 20110203
  Transmission Date: 20110831
  Serious: Yes (Hospitalization, Other)
  Sender: FDA-Public Use
  Company Number: PHHO2010IT17859

PATIENT
  Sex: Male
  Weight: 62 kg

DRUGS (5)
  1. NEORAL [Interacting]
     Indication: HEART TRANSPLANT
     Dosage: 200 MG, UNK
     Route: 048
     Dates: start: 20100514, end: 20100706
  2. EVEROLIMUS [Interacting]
     Dosage: 0.25 MG, BID
     Route: 048
     Dates: start: 20100707
  3. NEORAL [Interacting]
     Dosage: 175 MG, UNK
     Route: 048
     Dates: start: 20100707, end: 20100709
  4. EVEROLIMUS [Suspect]
     Indication: HEART TRANSPLANT
     Dosage: 0.5 MG, BID
     Route: 048
     Dates: start: 20100518, end: 20100706
  5. NEORAL [Interacting]
     Dosage: 150 MG, UNK
     Route: 048
     Dates: start: 20100710

REACTIONS (3)
  - RENAL FAILURE ACUTE [None]
  - HYPERURICAEMIA [None]
  - DRUG INTERACTION [None]
